FAERS Safety Report 16824915 (Version 2)
Quarter: 2019Q3

REPORT INFORMATION
  Report Type: Spontaneous
  Country: US (occurrence: US)
  Receive Date: 20190918
  Receipt Date: 20190927
  Transmission Date: 20191005
  Serious: No
  Sender: FDA-Public Use
  Company Number: US-GLAXOSMITHKLINE-US2019AMR166119

PATIENT

DRUGS (1)
  1. VALACYCLOVIR [Suspect]
     Active Substance: VALACYCLOVIR HYDROCHLORIDE
     Indication: PRODUCT USED FOR UNKNOWN INDICATION
     Dosage: UNK
     Route: 065

REACTIONS (8)
  - Condition aggravated [Unknown]
  - Ill-defined disorder [Unknown]
  - Skin exfoliation [Unknown]
  - Anxiety [Unknown]
  - Product substitution issue [Unknown]
  - Urticaria [Unknown]
  - Headache [Unknown]
  - Rash [Not Recovered/Not Resolved]
